FAERS Safety Report 8332504-3 (Version None)
Quarter: 2012Q2

REPORT INFORMATION
  Report Type: 
  Country: None (occurrence: None)
  Receive Date: 20120503
  Receipt Date: 20120427
  Transmission Date: 20120825
  Serious: No
  Sender: FDA-Public Use
  Company Number: US-PFIZER INC-2012103882

PATIENT
  Sex: Male

DRUGS (1)
  1. INLYTA [Suspect]
     Indication: NEOPLASM MALIGNANT
     Dosage: 10 MG, 2X/DAY

REACTIONS (4)
  - CONSTIPATION [None]
  - FATIGUE [None]
  - GLOSSODYNIA [None]
  - NIGHT SWEATS [None]
